FAERS Safety Report 4621908-8 (Version None)
Quarter: 2005Q1

REPORT INFORMATION
  Report Type: 
  Country: None (occurrence: None)
  Receive Date: 20050329
  Receipt Date: 20050317
  Transmission Date: 20050727
  Serious: Yes (Other)
  Sender: FDA-Public Use
  Company Number: 12889416

PATIENT
  Age: 52 Year
  Sex: Male

DRUGS (3)
  1. LAMIVUDINE [Suspect]
     Indication: HIV INFECTION
     Dates: start: 20040312
  2. STAVUDINE [Suspect]
     Indication: HIV INFECTION
     Dates: start: 20040312
  3. NEVIRAPINE [Suspect]
     Indication: HIV INFECTION
     Dates: start: 20040312

REACTIONS (1)
  - GAMMA-GLUTAMYLTRANSFERASE INCREASED [None]
